FAERS Safety Report 6858178-6 (Version None)
Quarter: 2010Q3

REPORT INFORMATION
  Report Type: 
  Country: None (occurrence: None)
  Receive Date: 20100719
  Receipt Date: 20080201
  Transmission Date: 20110219
  Serious: No
  Sender: FDA-Public Use
  Company Number: US-PFIZER INC-2008011813

PATIENT
  Sex: Male
  Weight: 86.2 kg

DRUGS (2)
  1. CHANTIX [Suspect]
     Indication: SMOKING CESSATION THERAPY
     Route: 048
     Dates: start: 20070927, end: 20071018
  2. TETRACYCLINE [Concomitant]
     Indication: ROSACEA
     Route: 048

REACTIONS (4)
  - DEPRESSION [None]
  - HERPES ZOSTER [None]
  - IRRITABILITY [None]
  - UNEVALUABLE EVENT [None]
